FAERS Safety Report 10042295 (Version 3)
Quarter: 2014Q2

REPORT INFORMATION
  Report Type: Spontaneous
  Country: IT (occurrence: IT)
  Receive Date: 20140327
  Receipt Date: 20140424
  Transmission Date: 20141212
  Serious: Yes (Hospitalization)
  Sender: FDA-Public Use
  Company Number: IT-TEVA-470407ISR

PATIENT
  Age: 34 Year
  Sex: Female

DRUGS (6)
  1. ZOLPIDEM [Suspect]
     Indication: DRUG ABUSE
     Dosage: 100 MG TOTAL
     Route: 048
     Dates: start: 20140220, end: 20140220
  2. ZOLPIDEM [Suspect]
     Indication: DEPRESSION
     Dosage: 1 TABLET DAILY; AFTER AE^S THE PATIENT TOOK 1 TAB/DAY
     Route: 048
  3. HALCION - 250 MICROGRAMMI COMPRESSE - PFIZER ITALIA S.R.L. [Suspect]
     Indication: DRUG ABUSE
     Dosage: 2.5 MG TOTAL
     Route: 048
     Dates: start: 20140220, end: 20140220
  4. HALCION - 250 MICROGRAMMI COMPRESSE - PFIZER ITALIA S.R.L. [Suspect]
     Indication: INSOMNIA
     Dosage: 1 TABLET DAILY; AFTER AE^S THE PATIENT TOOK 1 TAB/DAY
     Route: 048
  5. LEXOTAN - 2,5MG/ML GOCCE ORALI, SOLUZIONE - ROCHE S.P.A. [Suspect]
     Indication: DRUG ABUSE
     Dosage: ORAL DROPS, SOLUTION, 10 ML TOTAL
     Route: 048
     Dates: start: 20140220, end: 20140220
  6. LEXOTAN - 2,5MG/ML GOCCE ORALI, SOLUZIONE - ROCHE S.P.A. [Suspect]
     Indication: ANXIETY
     Dosage: 15 GTT AS REQUIRED
     Route: 048

REACTIONS (3)
  - Drug abuse [Recovered/Resolved]
  - Sopor [Recovered/Resolved]
  - Intentional self-injury [Recovered/Resolved]
